FAERS Safety Report 6925103-9 (Version None)
Quarter: 2010Q3

REPORT INFORMATION
  Report Type: 
  Country: None (occurrence: None)
  Receive Date: 20100810
  Receipt Date: 20100727
  Transmission Date: 20110219
  Serious: Yes (Other)
  Sender: FDA-Public Use
  Company Number: 20100353

PATIENT
  Age: 74 Year
  Sex: Female

DRUGS (1)
  1. CYANOCOBALAMIN [Suspect]

REACTIONS (1)
  - TREMOR [None]
